FAERS Safety Report 9158118 (Version 2)
Quarter: 2013Q1

REPORT INFORMATION
  Report Type: Spontaneous
  Country: JP (occurrence: JP)
  Receive Date: 20130312
  Receipt Date: 20130321
  Transmission Date: 20140127
  Serious: Yes (Hospitalization)
  Sender: FDA-Public Use
  Company Number: JP-GLAXOSMITHKLINE-B0873494A

PATIENT
  Age: 68 Year
  Sex: Female

DRUGS (6)
  1. LAMICTAL [Suspect]
     Indication: DEPRESSION
     Dosage: 25MG TWICE PER DAY
     Route: 048
     Dates: start: 20130221, end: 20130225
  2. TEGRETOL [Concomitant]
     Indication: ELECTROENCEPHALOGRAM ABNORMAL
     Dosage: 300MG TWICE PER DAY
     Route: 048
  3. ROHYPNOL [Concomitant]
     Indication: INSOMNIA
     Dosage: 2MG PER DAY
     Route: 048
  4. MEVALOTIN [Concomitant]
     Indication: HYPERLIPIDAEMIA
     Dosage: 5MG PER DAY
     Route: 048
  5. FUROSEMIDE [Concomitant]
     Indication: HYPERTROPHIC CARDIOMYOPATHY
     Dosage: 40MG PER DAY
     Route: 048
  6. MAGLAX [Concomitant]
     Indication: CONSTIPATION
     Dosage: 1900MG THREE TIMES PER DAY
     Route: 048

REACTIONS (1)
  - Pneumonia [Recovering/Resolving]
